FAERS Safety Report 25093345 (Version 1)
Quarter: 2025Q1

REPORT INFORMATION
  Report Type: Spontaneous
  Country: HR (occurrence: HR)
  Receive Date: 20250319
  Receipt Date: 20250319
  Transmission Date: 20250408
  Serious: Yes (Other)
  Sender: TAKEDA
  Company Number: None

PATIENT
  Age: 32 Year
  Sex: Female

DRUGS (2)
  1. BRINTELLIX [Suspect]
     Active Substance: VORTIOXETINE HYDROBROMIDE
     Indication: Acute stress disorder
     Dosage: 10 MILLIGRAM, QD
     Dates: start: 20241201, end: 20250127
  2. FOLIC ACID\INOSITOL [Concomitant]
     Active Substance: FOLIC ACID\INOSITOL
     Indication: Product used for unknown indication

REACTIONS (4)
  - Abortion spontaneous [Recovered/Resolved]
  - Abortion threatened [Recovered/Resolved]
  - Product use in unapproved indication [Unknown]
  - Maternal exposure during pregnancy [Unknown]

NARRATIVE: CASE EVENT DATE: 20250201
